FAERS Safety Report 5010176-3 (Version None)
Quarter: 2006Q2

REPORT INFORMATION
  Report Type: 
  Country: None (occurrence: None)
  Receive Date: 20060404
  Receipt Date: 20051128
  Transmission Date: 20061013
  Serious: No
  Sender: FDA-Public Use
  Company Number: US200511002944

PATIENT
  Age: 42 Year
  Sex: Female

DRUGS (5)
  1. CYMBALTA [Suspect]
     Indication: BURNING SENSATION
     Dosage: 30 MG, DAILY (1/D)
     Dates: start: 20050301
  2. METFORMIN [Concomitant]
  3. LORAZEPAM [Concomitant]
  4. SINGULAIR [Concomitant]
  5. ASPIRIN [Concomitant]

REACTIONS (4)
  - CONFUSIONAL STATE [None]
  - DRUG WITHDRAWAL SYNDROME [None]
  - IRRITABILITY [None]
  - PARAESTHESIA [None]
